FAERS Safety Report 6190154-1 (Version None)
Quarter: 2009Q2

REPORT INFORMATION
  Report Type: 
  Country: None (occurrence: None)
  Receive Date: 20090513
  Receipt Date: 20090513
  Transmission Date: 20091009
  Serious: Yes (Life-Threatening, Other)
  Sender: FDA-Public Use
  Company Number: None

PATIENT
  Age: 87 Year
  Sex: Female
  Weight: 81.6475 kg

DRUGS (2)
  1. NITROFURANTOIN [Suspect]
     Indication: KLEBSIELLA INFECTION
     Dosage: 100 MG ONE PILL CAUSED PO
     Route: 048
     Dates: start: 20090509, end: 20090509
  2. NITROFURANTOIN [Suspect]
     Indication: URINARY TRACT INFECTION
     Dosage: 100 MG ONE PILL CAUSED PO
     Route: 048
     Dates: start: 20090509, end: 20090509

REACTIONS (5)
  - DIARRHOEA [None]
  - LOSS OF CONSCIOUSNESS [None]
  - PRODUCT SUBSTITUTION ISSUE [None]
  - RHINORRHOEA [None]
  - VOMITING [None]
